FAERS Safety Report 6197668-9 (Version None)
Quarter: 2009Q2

REPORT INFORMATION
  Report Type: 
  Country: None (occurrence: None)
  Receive Date: 20090521
  Receipt Date: 20090519
  Transmission Date: 20091009
  Serious: Yes (Hospitalization)
  Sender: FDA-Public Use
  Company Number: BE-BRISTOL-MYERS SQUIBB COMPANY-14632194

PATIENT
  Age: 82 Year

DRUGS (5)
  1. CETUXIMAB [Suspect]
     Indication: PROSTATE CANCER
     Dosage: RECENT INFUSION ON 14-MAY-2009
     Route: 042
     Dates: start: 20090430
  2. TAXOTERE [Suspect]
     Indication: PROSTATE CANCER
     Dosage: RECENT INFUSION ON 07-MAY-2009
     Route: 042
     Dates: start: 20090430
  3. ACETYLSALICYLIC ACID [Concomitant]
     Route: 048
     Dates: start: 20081222
  4. GLIMEPIRIDE [Concomitant]
     Route: 048
     Dates: start: 20081222
  5. ATORVASTATIN CALCIUM [Concomitant]
     Route: 048
     Dates: start: 20081222

REACTIONS (2)
  - ANOREXIA [None]
  - HYPOTONIA [None]
